FAERS Safety Report 10263521 (Version 1)
Quarter: 2014Q2

REPORT INFORMATION
  Report Type: Spontaneous
  Country: DE (occurrence: DE)
  Receive Date: 20140626
  Receipt Date: 20140626
  Transmission Date: 20141212
  Serious: Yes (Death, Hospitalization, Other)
  Sender: FDA-Public Use
  Company Number: PHHY2014DE074766

PATIENT
  Age: 42 Year
  Sex: Male
  Weight: 106 kg

DRUGS (4)
  1. IMIPRAMINE [Suspect]
     Indication: SCHIZOPHRENIA
     Dosage: 100 MG, DAILY
  2. AMISULPRIDE [Interacting]
     Indication: SCHIZOPHRENIA
     Dosage: 400 MG, UNK
  3. HALOPERIDOL [Interacting]
     Indication: SCHIZOPHRENIA
     Dosage: 20 MG, PRN
  4. BIPERIDEN [Interacting]
     Indication: SCHIZOPHRENIA
     Dosage: 4 MG, UNK

REACTIONS (15)
  - Toxicity to various agents [Fatal]
  - Neuroleptic malignant syndrome [Unknown]
  - Convulsion [Unknown]
  - Hypotonia [Unknown]
  - Loss of consciousness [Unknown]
  - General physical health deterioration [Unknown]
  - Mydriasis [Unknown]
  - Muscle rigidity [Unknown]
  - Tachycardia [Unknown]
  - Hyperthermia [Unknown]
  - Hyperhidrosis [Unknown]
  - Dyspnoea [Unknown]
  - Ventricular fibrillation [Unknown]
  - Drug level increased [Unknown]
  - Drug interaction [Unknown]
